FAERS Safety Report 8996861 (Version 1)
Quarter: 2012Q4

REPORT INFORMATION
  Report Type: Spontaneous
  Country: US (occurrence: None)
  Receive Date: 20121228
  Receipt Date: 20121228
  Transmission Date: 20130627
  Serious: Yes (Hospitalization, Disabling)
  Sender: FDA-Public Use
  Company Number: None

PATIENT
  Age: 88 Year
  Sex: Male
  Weight: 77.57 kg

DRUGS (1)
  1. AMIODARONE [Suspect]
     Indication: HEARTBEATS IRREGULAR
     Dosage: 1 tablet twice a day mouth
     Dates: start: 20120918, end: 20121117

REACTIONS (7)
  - Hallucination [None]
  - Fall [None]
  - Tremor [None]
  - Irritability [None]
  - Activities of daily living impaired [None]
  - Visual impairment [None]
  - Aggression [None]
